FAERS Safety Report 20041450 (Version 2)
Quarter: 2021Q4

REPORT INFORMATION
  Report Type: Spontaneous
  Country: US (occurrence: US)
  Receive Date: 20211108
  Receipt Date: 20211231
  Transmission Date: 20220303
  Serious: No
  Sender: FDA-Public Use
  Company Number: US-drreddys-SPO/USA/21/0143487

PATIENT
  Age: 62 Year
  Sex: Male

DRUGS (5)
  1. DOCETAXEL [Suspect]
     Active Substance: DOCETAXEL
     Indication: Prostate cancer
     Dosage: 75 MG/M2 1 CYCLE
     Dates: start: 202003, end: 202006
  2. DOCETAXEL [Suspect]
     Active Substance: DOCETAXEL
     Indication: Metastatic neoplasm
  3. DOCETAXEL [Suspect]
     Active Substance: DOCETAXEL
     Indication: Metastases to liver
  4. LEUPROLIDE [Concomitant]
     Active Substance: LEUPROLIDE
     Indication: Prostate cancer
     Dates: start: 2020
  5. LEUPROLIDE [Concomitant]
     Active Substance: LEUPROLIDE
     Indication: Metastatic neoplasm

REACTIONS (1)
  - Fatigue [Unknown]

NARRATIVE: CASE EVENT DATE: 20200101
